FAERS Safety Report 5121647-3 (Version None)
Quarter: 2006Q4

REPORT INFORMATION
  Report Type: 
  Country: None (occurrence: None)
  Receive Date: 20061006
  Receipt Date: 20060905
  Transmission Date: 20070319
  Serious: Yes (Hospitalization)
  Sender: FDA-Public Use
  Company Number: PHHO2006FR14740

PATIENT
  Age: 65 Year
  Sex: Female
  Weight: 59 kg

DRUGS (2)
  1. CERTICAN [Suspect]
     Indication: RENAL TRANSPLANT
     Dosage: 0.75 MG, BID
     Route: 048
     Dates: start: 20060701, end: 20060826
  2. NEORAL [Suspect]
     Indication: RENAL TRANSPLANT
     Dosage: 50 MG, BID
     Route: 048
     Dates: start: 20060728, end: 20060829

REACTIONS (5)
  - CARDIAC FAILURE [None]
  - DRUG INEFFECTIVE [None]
  - HYPERTENSION [None]
  - NEPHROPATHY TOXIC [None]
  - URINARY TRACT INFECTION [None]
